FAERS Safety Report 20537160 (Version 1)
Quarter: 2022Q1

REPORT INFORMATION
  Report Type: Spontaneous
  Country: US (occurrence: US)
  Receive Date: 20220302
  Receipt Date: 20220302
  Transmission Date: 20220423
  Serious: Yes (Death, Hospitalization)
  Sender: FDA-Public Use
  Company Number: US-drreddys-LIT/USA/22/0147187

PATIENT
  Age: 13 Year
  Sex: Male

DRUGS (1)
  1. COLCHICINE [Suspect]
     Active Substance: COLCHICINE
     Indication: Product used for unknown indication
     Dosage: 0.13 MG/KG

REACTIONS (15)
  - Circulatory collapse [Fatal]
  - Toxicity to various agents [Fatal]
  - Abdominal compartment syndrome [Unknown]
  - Inflammation [Unknown]
  - Vomiting [Unknown]
  - Diarrhoea [Unknown]
  - Fatigue [Unknown]
  - Renal impairment [Unknown]
  - Hepatic function abnormal [Unknown]
  - Myelosuppression [Unknown]
  - Hyperlactacidaemia [Recovering/Resolving]
  - Capillary leak syndrome [Unknown]
  - Vasoplegia syndrome [Unknown]
  - Intentional overdose [Unknown]
  - Drug abuse [Unknown]
